FAERS Safety Report 20650819 (Version 1)
Quarter: 2022Q1

REPORT INFORMATION
  Report Type: Spontaneous
  Country: MX (occurrence: MX)
  Receive Date: 20220329
  Receipt Date: 20220329
  Transmission Date: 20220424
  Serious: Yes (Hospitalization)
  Sender: FDA-Public Use
  Company Number: MX-BAYER-2022A045254

PATIENT
  Age: 12 Year

DRUGS (1)
  1. LAROTRECTINIB [Suspect]
     Active Substance: LAROTRECTINIB
     Indication: Glioblastoma
     Dosage: 200 MG, QD
     Route: 048
     Dates: start: 20220306, end: 20220323

REACTIONS (2)
  - General physical health deterioration [None]
  - Glioblastoma [None]

NARRATIVE: CASE EVENT DATE: 20220323
